FAERS Safety Report 6201123-7 (Version None)
Quarter: 2009Q2

REPORT INFORMATION
  Report Type: 
  Country: None (occurrence: None)
  Receive Date: 20090526
  Receipt Date: 20090519
  Transmission Date: 20091009
  Serious: Yes (Hospitalization, Other)
  Sender: FDA-Public Use
  Company Number: CN-BAYER-200919296GPV

PATIENT
  Age: 82 Year
  Sex: Male

DRUGS (2)
  1. GLUCOBAY [Suspect]
     Indication: DIABETES MELLITUS
     Dosage: TOTAL DAILY DOSE: 150 MG
     Route: 048
     Dates: start: 20071001
  2. GLUCOBAY [Suspect]
     Dosage: TOTAL DAILY DOSE: 300 MG
     Route: 048
     Dates: start: 20070101, end: 20080201

REACTIONS (11)
  - ABDOMINAL DISTENSION [None]
  - ANOREXIA [None]
  - CONSTIPATION [None]
  - ERECTILE DYSFUNCTION [None]
  - HEPATIC FUNCTION ABNORMAL [None]
  - HYPOGLYCAEMIC COMA [None]
  - OLIGURIA [None]
  - RENAL FAILURE [None]
  - SOMNOLENCE [None]
  - SWELLING [None]
  - URINARY TRACT INFECTION [None]
